FAERS Safety Report 8138212-6 (Version None)
Quarter: 2012Q1

REPORT INFORMATION
  Report Type: 
  Country: None (occurrence: None)
  Receive Date: 20120215
  Receipt Date: 20110510
  Transmission Date: 20120608
  Serious: No
  Sender: FDA-Public Use
  Company Number: US-SANOFI-AVENTIS-2011SA030514

PATIENT
  Sex: Female

DRUGS (1)
  1. GLYBURIDE [Suspect]
     Route: 048

REACTIONS (4)
  - CHILLS [None]
  - FATIGUE [None]
  - BLOOD GLUCOSE INCREASED [None]
  - SOMNOLENCE [None]
